FAERS Safety Report 24629529 (Version 1)
Quarter: 2024Q4

REPORT INFORMATION
  Report Type: Spontaneous
  Country: NP (occurrence: NP)
  Receive Date: 20241118
  Receipt Date: 20241118
  Transmission Date: 20250114
  Serious: Yes (Other)
  Sender: PFIZER
  Company Number: NP-PFIZER INC-PV202400146049

PATIENT
  Age: 31 Year
  Sex: Male

DRUGS (1)
  1. XALKORI [Suspect]
     Active Substance: CRIZOTINIB
     Indication: Lung neoplasm malignant
     Dosage: UNK

REACTIONS (5)
  - Seizure [Unknown]
  - Loss of consciousness [Unknown]
  - Headache [Unknown]
  - Vomiting [Unknown]
  - Neoplasm progression [Unknown]
